FAERS Safety Report 5743552-1 (Version None)
Quarter: 2008Q2

REPORT INFORMATION
  Report Type: 
  Country: None (occurrence: None)
  Receive Date: 20080516
  Receipt Date: 20080507
  Transmission Date: 20081010
  Serious: Yes (Other)
  Sender: FDA-Public Use
  Company Number: 2008US000864

PATIENT
  Age: 51 Year
  Sex: Male

DRUGS (6)
  1. PROGRAF [Suspect]
     Indication: LIVER TRANSPLANT
     Dosage: ORAL
     Route: 048
  2. MYCOPHENOLATE MOFETIL [Concomitant]
  3. CHOLESTYRAMINE [Concomitant]
  4. LORATADINE [Concomitant]
  5. LEVOFLOCACIN (LEVOFLOXACIN) [Concomitant]
  6. CIPROFLOXACIN [Concomitant]

REACTIONS (2)
  - BILE DUCT OBSTRUCTION [None]
  - LIVER TRANSPLANT REJECTION [None]
